FAERS Safety Report 8527297 (Version 6)
Quarter: 2013Q2

REPORT INFORMATION
  Report Type: Spontaneous
  Country: TW (occurrence: TW)
  Receive Date: 20120424
  Receipt Date: 20130506
  Transmission Date: 20140414
  Serious: Yes (Life-Threatening, Hospitalization)
  Sender: FDA-Public Use
  Company Number: TW-ABBOTT-12P-153-0927804-00

PATIENT
  Age: 53 Year
  Sex: Female
  Weight: 53 kg

DRUGS (7)
  1. HUMIRA 40 MG/ 0.8 ML PRE-FILLED SYRINGE [Suspect]
     Indication: RHEUMATOID ARTHRITIS
     Route: 058
     Dates: start: 20110610, end: 20120224
  2. CALOMIDE [Concomitant]
     Indication: PRODUCT USED FOR UNKNOWN INDICATION
     Route: 048
     Dates: start: 20120316
  3. FLUITRAN [Concomitant]
     Indication: PRODUCT USED FOR UNKNOWN INDICATION
     Dosage: 2MG QDCC
     Route: 048
     Dates: start: 20120316
  4. PEIOHIA [Concomitant]
     Indication: PRODUCT USED FOR UNKNOWN INDICATION
     Route: 048
     Dates: start: 20120316
  5. SALAZOPYRIN [Concomitant]
     Indication: PRODUCT USED FOR UNKNOWN INDICATION
     Route: 048
     Dates: start: 20120316
  6. FOLIC ACID [Concomitant]
     Indication: PRODUCT USED FOR UNKNOWN INDICATION
     Route: 048
     Dates: start: 20120316
  7. METHOTREXATE [Concomitant]
     Indication: PRODUCT USED FOR UNKNOWN INDICATION
     Route: 048
     Dates: start: 20120316

REACTIONS (10)
  - Acute respiratory failure [Recovered/Resolved]
  - Pneumonia [Recovered/Resolved]
  - Lung abscess [Recovered/Resolved]
  - Klebsiella infection [Recovered/Resolved]
  - Sputum retention [Unknown]
  - Pyrexia [Recovered/Resolved]
  - Cough [Recovered/Resolved]
  - Respiratory distress [Recovered/Resolved]
  - Oedema peripheral [Recovered/Resolved]
  - Cerebrovascular arteriovenous malformation [Unknown]
